FAERS Safety Report 18497689 (Version 1)
Quarter: 2020Q4

REPORT INFORMATION
  Report Type: Spontaneous
  Country: PT (occurrence: PT)
  Receive Date: 20201112
  Receipt Date: 20201112
  Transmission Date: 20210114
  Serious: Yes (Other)
  Sender: FDA-Public Use
  Company Number: PT-MYLANLABS-2020M1094312

PATIENT
  Age: 37 Year
  Sex: Female

DRUGS (14)
  1. THIOGUANINE [Suspect]
     Active Substance: THIOGUANINE
     Indication: ACUTE LEUKAEMIA
     Dosage: 100 MG/M2, DAILY (R2, DAY 1 TO 5)
     Route: 048
     Dates: start: 201504, end: 201508
  2. IFOSFAMIDE. [Suspect]
     Active Substance: IFOSFAMIDE
     Indication: ACUTE LEUKAEMIA
     Dosage: 400 MG/M2, DAILY (R2, DAY 1 TO 5)
     Route: 042
     Dates: start: 201504, end: 201508
  3. L-ASPARAGINASE [Suspect]
     Active Substance: ASPARAGINASE
     Indication: ACUTE LEUKAEMIA
     Dosage: 25000 UI/M2, DAILY (R1, DAY 6; R2, DAY 6; R3, DAY 6)
     Route: 030
     Dates: start: 201504, end: 201508
  4. VINCRISTINE [Suspect]
     Active Substance: VINCRISTINE
     Indication: ACUTE LEUKAEMIA
     Dosage: 1.5 MG/M2, DAILY (R1, DAY 1, 6)
     Route: 048
  5. DEXAMETHASONE. [Suspect]
     Active Substance: DEXAMETHASONE
     Indication: ACUTE LEUKAEMIA
     Dosage: 20 MG/M2, DAILY (R1, DAY 1 TO 5; R2, DAY 1 TO 5; R3, DAY 1 TO 5)
     Route: 048
     Dates: start: 201504, end: 201508
  6. ETOPOSIDE. [Suspect]
     Active Substance: ETOPOSIDE
     Indication: ACUTE LEUKAEMIA
     Dosage: 150 MG/M2, DAILY (R3, DAY 3 TO 5)
     Route: 042
     Dates: start: 201504, end: 201508
  7. METHOTREXATE. [Suspect]
     Active Substance: METHOTREXATE
     Indication: ACUTE LEUKAEMIA
     Dosage: 1000 MILLIGRAM/SQ. METER, Q36H
     Route: 042
  8. METHOTREXATE. [Suspect]
     Active Substance: METHOTREXATE
     Dosage: 5000 MILLIGRAM/SQ. METER, QD
     Route: 042
  9. MERCAPTOPURINE. [Suspect]
     Active Substance: MERCAPTOPURINE
     Indication: ACUTE LEUKAEMIA
     Dosage: 100MG/M2, DAILY (DAY 1 TO 5)
     Route: 048
     Dates: start: 201504, end: 201508
  10. VINCRISTINE [Suspect]
     Active Substance: VINCRISTINE
     Indication: ACUTE LEUKAEMIA
     Dosage: 3 MG/M2, DAILY (R2)
     Route: 042
     Dates: start: 201504, end: 201508
  11. CYTARABINE. [Suspect]
     Active Substance: CYTARABINE
     Indication: ACUTE LEUKAEMIA
     Dosage: AGE DEPENDENT
     Route: 037
     Dates: start: 201504, end: 201508
  12. DAUNORUBICIN [Suspect]
     Active Substance: DAUNORUBICIN
     Indication: ACUTE LEUKAEMIA
     Dosage: 50 MG/M2, DAILY (R2, DAY 5)
     Route: 042
     Dates: start: 201504, end: 201508
  13. PREDNISOLONE. [Suspect]
     Active Substance: PREDNISOLONE
     Indication: ACUTE LEUKAEMIA
     Dosage: AGE DEPENDENT (R1, DAY 1; R2, DAY 1; R3, DAY 5)
     Route: 039
     Dates: start: 201504, end: 201508
  14. METHOTREXATE SODIUM. [Suspect]
     Active Substance: METHOTREXATE SODIUM
     Indication: ACUTE LEUKAEMIA
     Dosage: DOSE DEPENDENT
     Route: 037
     Dates: start: 201504, end: 201508

REACTIONS (7)
  - Febrile neutropenia [Unknown]
  - Aplasia [Unknown]
  - Sepsis [Unknown]
  - Mucosal inflammation [Unknown]
  - Neoplasm recurrence [Unknown]
  - Product use issue [Unknown]
  - Hepatotoxicity [Unknown]

NARRATIVE: CASE EVENT DATE: 201607
